FAERS Safety Report 17552074 (Version 1)
Quarter: 2020Q1

REPORT INFORMATION
  Report Type: Spontaneous
  Country: US (occurrence: US)
  Receive Date: 20200317
  Receipt Date: 20200317
  Transmission Date: 20200409
  Serious: No
  Sender: FDA-Public Use
  Company Number: US-LUNDBECK-DKLU3014092

PATIENT
  Age: 24 Year
  Sex: Female

DRUGS (1)
  1. SABRIL [Suspect]
     Active Substance: VIGABATRIN
     Indication: LENNOX-GASTAUT SYNDROME
     Dosage: OVERDOSE (4500 MG DAILY DOSE)
     Route: 048
     Dates: start: 20190920

REACTIONS (1)
  - Prescribed overdose [Unknown]
